FAERS Safety Report 7008948 (Version 4)
Quarter: 2018Q3

REPORT INFORMATION
  Report Type: Spontaneous
  Country: IT (occurrence: IT)
  Receive Date: 20090602
  Receipt Date: 20180827
  Transmission Date: 20181010
  Serious: Yes (Hospitalization, Other)
  Sender: FDA-Public Use
  Company Number: IT-PFIZER INC-2009217441

PATIENT
  Age: 70 Year
  Sex: Female

DRUGS (2)
  1. LYRICA [Suspect]
     Active Substance: PREGABALIN
     Indication: BONE PAIN
     Dosage: 300 MG, 1X/DAY
     Route: 048
     Dates: start: 20090102, end: 20090513
  2. GABAPENTIN TEVA [Suspect]
     Active Substance: GABAPENTIN
     Indication: BONE PAIN
     Dosage: 1800 MG, 1X/DAY
     Route: 048
     Dates: start: 20090303, end: 20090513

REACTIONS (2)
  - Product use in unapproved indication [Unknown]
  - Hepatitis acute [Recovered/Resolved]

NARRATIVE: CASE EVENT DATE: 20090102
